FAERS Safety Report 5718654-6 (Version None)
Quarter: 2008Q2

REPORT INFORMATION
  Report Type: 
  Country: None (occurrence: None)
  Receive Date: 20080425
  Receipt Date: 20080414
  Transmission Date: 20081010
  Serious: Yes (Other)
  Sender: FDA-Public Use
  Company Number: BR-PFIZER INC-2008032338

PATIENT
  Sex: Male
  Weight: 132 kg

DRUGS (5)
  1. CHAMPIX [Suspect]
     Indication: TOBACCO USER
     Route: 048
     Dates: start: 20080318, end: 20080406
  2. DIAZEPAM [Concomitant]
  3. PHENOBARBITAL TAB [Concomitant]
  4. ALDAZIDA [Concomitant]
  5. CARDIZEM CD [Concomitant]

REACTIONS (4)
  - CONFUSIONAL STATE [None]
  - HYPERGLYCAEMIA [None]
  - NASOPHARYNGITIS [None]
  - NAUSEA [None]
